FAERS Safety Report 14144815 (Version 1)
Quarter: 2017Q4

REPORT INFORMATION
  Report Type: Report from Study
  Country: BR (occurrence: BR)
  Receive Date: 20171031
  Receipt Date: 20171031
  Transmission Date: 20180321
  Serious: Yes (Death)
  Sender: FDA-Public Use
  Company Number: PHHY2017BR159543

PATIENT
  Sex: Female
  Weight: 59 kg

DRUGS (1)
  1. TRAVATAN Z [Suspect]
     Active Substance: TRAVOPROST
     Indication: OCULAR HYPERTENSION
     Dosage: 1 GTT, QD (ONE DROP IN EACH EYE)
     Route: 047
     Dates: start: 20011121

REACTIONS (2)
  - Infarction [Fatal]
  - Cardiac arrest [Fatal]
